FAERS Safety Report 9013509 (Version 1)
Quarter: 2012Q4

REPORT INFORMATION
  Report Type: Spontaneous
  Country: FR (occurrence: None)
  Receive Date: 20121231
  Receipt Date: 20121231
  Transmission Date: 20130627
  Serious: Yes (Hospitalization)
  Sender: FDA-Public Use
  Company Number: DSA_61627_2012

PATIENT
  Age: 53 Year
  Sex: Female

DRUGS (1)
  1. FLAGYL [Suspect]
     Indication: URINARY TRACT INFECTION
     Dates: start: 20121020, end: 20121026

REACTIONS (2)
  - Vascular purpura [None]
  - Skin lesion [None]
